FAERS Safety Report 6847669-X (Version None)
Quarter: 2010Q3

REPORT INFORMATION
  Report Type: 
  Country: None (occurrence: None)
  Receive Date: 20100716
  Receipt Date: 20100707
  Transmission Date: 20110219
  Serious: Yes (Other)
  Sender: FDA-Public Use
  Company Number: PE-JNJFOC-20090600533

PATIENT
  Age: 46 Year
  Sex: Male

DRUGS (3)
  1. REMICADE [Suspect]
     Indication: ANKYLOSING SPONDYLITIS
     Route: 042
  2. REMICADE [Suspect]
     Route: 042
  3. REMICADE [Suspect]
     Route: 042

REACTIONS (6)
  - DISCOMFORT [None]
  - DYSPNOEA [None]
  - HEADACHE [None]
  - INFUSION RELATED REACTION [None]
  - NAUSEA [None]
  - VISION BLURRED [None]
